FAERS Safety Report 19025741 (Version 4)
Quarter: 2021Q2

REPORT INFORMATION
  Report Type: Spontaneous
  Country: DE (occurrence: DE)
  Receive Date: 20210318
  Receipt Date: 20210520
  Transmission Date: 20210717
  Serious: Yes (Hospitalization)
  Sender: FDA-Public Use
  Company Number: DE-TORRENT-00019841

PATIENT
  Age: 14 Year
  Sex: Male
  Weight: 80 kg

DRUGS (5)
  1. IBUPROFEN. [Suspect]
     Active Substance: IBUPROFEN
     Indication: PAIN IN EXTREMITY
     Dosage: 3600 MG, EVERYDAY 6 SEPARATED DOSES (6X600 MG)
     Route: 048
     Dates: start: 20190111, end: 20190111
  2. DICLOFENAC [Suspect]
     Active Substance: DICLOFENAC
     Indication: PAIN IN EXTREMITY
     Dosage: 375 MG, EVERYDAY 5 SEPARATED DOSES (5X75 MG)
     Route: 048
     Dates: start: 20190111, end: 20190111
  3. PANTOPRAZOLE [Suspect]
     Active Substance: PANTOPRAZOLE
     Indication: PAIN IN EXTREMITY
     Dosage: 160 MG, EVERYDAY 4 SEPARATED DOSES (4X40 MG)
     Route: 048
     Dates: start: 20190111, end: 20190111
  4. PREDNISOLONE. [Suspect]
     Active Substance: PREDNISOLONE
     Indication: PAIN IN EXTREMITY
     Dosage: AT LEAST, 20MG
     Route: 048
     Dates: start: 20190111, end: 20190111
  5. FERRO SANOL [Suspect]
     Active Substance: FERROUS GLYCINE SULFATE
     Indication: PAIN IN EXTREMITY
     Dosage: 1000 MG, EVERYDAY 10 SEPARATED DOSES (10X100 MG)
     Route: 048
     Dates: start: 20190111, end: 20190111

REACTIONS (7)
  - Substance abuse [Unknown]
  - Toxicity to various agents [Recovering/Resolving]
  - Chest pain [Recovering/Resolving]
  - Metatarsalgia [Unknown]
  - Overdose [Recovering/Resolving]
  - Abdominal pain upper [Recovering/Resolving]
  - Vomiting [Recovering/Resolving]

NARRATIVE: CASE EVENT DATE: 20190111
